FAERS Safety Report 5574960-X (Version None)
Quarter: 2007Q4

REPORT INFORMATION
  Report Type: 
  Country: None (occurrence: None)
  Receive Date: 20071227
  Receipt Date: 20071218
  Transmission Date: 20080405
  Serious: Yes (Hospitalization)
  Sender: FDA-Public Use
  Company Number: B0497263A

PATIENT
  Age: 78 Year
  Sex: Female

DRUGS (5)
  1. PAROXETINE HYDROCHLORIDE [Suspect]
     Indication: DEPRESSION
     Dosage: 20MG PER DAY
     Route: 048
     Dates: start: 20071101, end: 20071109
  2. AMILORIDE HCL AND HYDROCHLOROTHIAZIDE [Suspect]
     Indication: HYPERTENSION
     Route: 048
     Dates: start: 19990101, end: 20071109
  3. OXAZEPAM [Concomitant]
     Dosage: 10MG THREE TIMES PER DAY
     Route: 065
  4. CORTICOSTEROID [Concomitant]
  5. NORVASC [Concomitant]
     Dosage: 5MG PER DAY

REACTIONS (12)
  - BLOOD CREATININE DECREASED [None]
  - BLOOD OSMOLARITY DECREASED [None]
  - BLOOD POTASSIUM DECREASED [None]
  - CREATININE URINE DECREASED [None]
  - DECREASED APPETITE [None]
  - HEADACHE [None]
  - HYPONATRAEMIA [None]
  - ILL-DEFINED DISORDER [None]
  - MALAISE [None]
  - NAUSEA [None]
  - SENSATION OF HEAVINESS [None]
  - VOMITING [None]
